FAERS Safety Report 4882193-5 (Version None)
Quarter: 2006Q1

REPORT INFORMATION
  Report Type: 
  Country: None (occurrence: None)
  Receive Date: 20060117
  Receipt Date: 20051220
  Transmission Date: 20060701
  Serious: Yes (Hospitalization, Disabling)
  Sender: FDA-Public Use
  Company Number: US-MERCK-0512USA03299

PATIENT
  Age: 56 Year
  Sex: Female
  Weight: 82 kg

DRUGS (7)
  1. VIOXX [Suspect]
     Indication: ARTHRITIS
     Route: 048
     Dates: start: 20000501, end: 20040801
  2. HYDROCHLOROTHIAZIDE [Concomitant]
     Route: 065
  3. PREVACID [Concomitant]
     Route: 065
  4. VERAPAMIL MSD LP [Concomitant]
     Route: 065
  5. TYLENOL (CAPLET) [Concomitant]
     Route: 065
  6. CALAN [Concomitant]
     Route: 048
  7. LORATADINE [Concomitant]
     Route: 065

REACTIONS (18)
  - BACK PAIN [None]
  - CARPAL TUNNEL SYNDROME [None]
  - CEREBROVASCULAR ACCIDENT [None]
  - CERVIX CARCINOMA [None]
  - CHEST PAIN [None]
  - COMPRESSION FRACTURE [None]
  - CORONARY ARTERY DISEASE [None]
  - COUGH [None]
  - DYSPEPSIA [None]
  - DYSPNOEA EXERTIONAL [None]
  - GALLBLADDER DISORDER [None]
  - HEADACHE [None]
  - HYPERCHOLESTEROLAEMIA [None]
  - MENISCUS LESION [None]
  - OSTEOARTHRITIS [None]
  - PEPTIC ULCER [None]
  - PLEURISY VIRAL [None]
  - RESPIRATORY TRACT INFECTION [None]
